FAERS Safety Report 11448498 (Version 1)
Quarter: 2015Q3

REPORT INFORMATION
  Report Type: Spontaneous
  Country: US (occurrence: US)
  Receive Date: 20150902
  Receipt Date: 20150902
  Transmission Date: 20151125
  Serious: Yes (Hospitalization, Other)
  Sender: FDA-Public Use
  Company Number: US-GLAXOSMITHKLINE-US2015125599

PATIENT
  Age: 83 Year
  Sex: Female

DRUGS (13)
  1. FOLIC ACID. [Concomitant]
     Active Substance: FOLIC ACID
  2. TRAVATAN EYE DROPS [Concomitant]
  3. METOPROLOL [Concomitant]
     Active Substance: METOPROLOL
  4. VISIVITE [Concomitant]
  5. FLOVENT HFA [Suspect]
     Active Substance: FLUTICASONE PROPIONATE
     Indication: ASTHMA
     Dosage: 1 PUFF(S), QD
     Route: 055
     Dates: start: 2005
  6. FLOVENT HFA [Suspect]
     Active Substance: FLUTICASONE PROPIONATE
     Dosage: 1 PUFF(S), BID
  7. METHOTREXATE [Concomitant]
     Active Substance: METHOTREXATE
  8. VITAMIN B12 [Concomitant]
     Active Substance: CYANOCOBALAMIN
  9. SIMVASTATIN. [Concomitant]
     Active Substance: SIMVASTATIN
  10. IRON [Concomitant]
     Active Substance: IRON
  11. SYNTHROID [Concomitant]
     Active Substance: LEVOTHYROXINE SODIUM
  12. CALCIUM [Concomitant]
     Active Substance: CALCIUM
  13. VITAMIN C [Concomitant]
     Active Substance: ASCORBIC ACID

REACTIONS (6)
  - Heart rate irregular [Unknown]
  - Device use error [Recovered/Resolved]
  - Cardiac pacemaker insertion [Recovered/Resolved]
  - Pulmonary congestion [Recovering/Resolving]
  - Inappropriate schedule of drug administration [Unknown]
  - Cough [Recovering/Resolving]

NARRATIVE: CASE EVENT DATE: 2014
